FAERS Safety Report 6173766-0 (Version None)
Quarter: 2009Q2

REPORT INFORMATION
  Report Type: 
  Country: None (occurrence: None)
  Receive Date: 20090430
  Receipt Date: 20090421
  Transmission Date: 20091009
  Serious: Yes (Life-Threatening)
  Sender: FDA-Public Use
  Company Number: FR-AMGEN-UK343871

PATIENT
  Sex: Male

DRUGS (10)
  1. MIMPARA [Suspect]
     Indication: DRUG USE FOR UNKNOWN INDICATION
     Route: 065
     Dates: start: 20090307
  2. MICERA [Suspect]
     Indication: ANAEMIA
     Route: 042
     Dates: start: 20090407
  3. VENOFER [Concomitant]
     Route: 065
     Dates: start: 20090404
  4. LASIX [Concomitant]
     Route: 065
     Dates: start: 20090203
  5. RENAGEL [Concomitant]
     Route: 065
     Dates: start: 20090307
  6. SPECIAFOLDINE [Concomitant]
     Route: 065
     Dates: start: 20090113
  7. ZYLORIC [Concomitant]
     Route: 065
     Dates: start: 20090113
  8. VITAMIN B-12 [Concomitant]
     Route: 065
  9. DUPHALAC [Concomitant]
     Route: 065
     Dates: start: 20090228
  10. SODIUM BICARBONATE [Concomitant]
     Route: 065
     Dates: start: 20090113

REACTIONS (3)
  - BLOOD PRESSURE DECREASED [None]
  - CHEST DISCOMFORT [None]
  - PRURITUS [None]
